FAERS Safety Report 5010286-0 (Version None)
Quarter: 2006Q2

REPORT INFORMATION
  Report Type: 
  Country: None (occurrence: None)
  Receive Date: 20060515
  Receipt Date: 20060502
  Transmission Date: 20061013
  Serious: Yes (Hospitalization)
  Sender: FDA-Public Use
  Company Number: 2006-142224-NL

PATIENT
  Age: 71 Year
  Sex: Male

DRUGS (6)
  1. TICE BCG [Suspect]
     Indication: BLADDER CANCER
     Dates: start: 20060101, end: 20060101
  2. BENDROFLUAZIDE [Concomitant]
  3. IRBESARTAN [Concomitant]
  4. SIMVASTATIN [Concomitant]
  5. OMEPRAZOLE [Concomitant]
  6. DOXAZOSIN [Concomitant]

REACTIONS (1)
  - ATRIAL FIBRILLATION [None]
